FAERS Safety Report 23366725 (Version 1)
Quarter: 2024Q1

REPORT INFORMATION
  Report Type: Spontaneous
  Country: US (occurrence: US)
  Receive Date: 20240104
  Receipt Date: 20240104
  Transmission Date: 20240409
  Serious: Yes (Other)
  Sender: FDA-Public Use
  Company Number: US-PFIZER INC-PV202300210109

PATIENT
  Age: 68 Year
  Sex: Female
  Weight: 112.7 kg

DRUGS (3)
  1. IBRANCE [Suspect]
     Active Substance: PALBOCICLIB
     Indication: Breast cancer metastatic
     Dosage: 125 MG DAILY FOR 21 OF 28 DAYS
     Route: 048
     Dates: start: 20230524
  2. IBRANCE [Suspect]
     Active Substance: PALBOCICLIB
     Indication: Hormone receptor positive breast cancer
  3. LETROZOLE [Concomitant]
     Active Substance: LETROZOLE
     Dosage: 2.5 MG, DAILY
     Route: 048
     Dates: start: 20200831

REACTIONS (4)
  - Humerus fracture [Unknown]
  - Platelet count increased [Unknown]
  - Inflammation [Unknown]
  - Blood pressure increased [Unknown]
